FAERS Safety Report 9290131 (Version 2)
Quarter: 2013Q2

REPORT INFORMATION
  Report Type: Spontaneous
  Country: BR (occurrence: BR)
  Receive Date: 20130515
  Receipt Date: 20130528
  Transmission Date: 20140414
  Serious: Yes (Hospitalization, Other)
  Sender: FDA-Public Use
  Company Number: BR-MPIJNJ-2013-03615

PATIENT
  Sex: 0

DRUGS (5)
  1. VELCADE [Suspect]
     Indication: PLASMACYTOMA
     Dosage: UNK
     Route: 065
     Dates: start: 20130314
  2. BACTRIM [Concomitant]
     Indication: INFECTION
  3. ALLOPURINOL [Concomitant]
     Indication: BLOOD URIC ACID
  4. ACYCLOVIR                          /00587301/ [Concomitant]
     Indication: ANTIVIRAL DRUG LEVEL
  5. OMEPRAZOLE [Concomitant]

REACTIONS (3)
  - Splenomegaly [Recovered/Resolved]
  - Abdominal pain upper [Not Recovered/Not Resolved]
  - Abdominal pain upper [Not Recovered/Not Resolved]
